FAERS Safety Report 6226589-8 (Version None)
Quarter: 2009Q2

REPORT INFORMATION
  Report Type: 
  Country: None (occurrence: None)
  Receive Date: 20090612
  Receipt Date: 20090518
  Transmission Date: 20091009
  Serious: No
  Sender: FDA-Public Use
  Company Number: US-ABBOTT-09P-163-0574354-00

PATIENT
  Sex: Female
  Weight: 104.42 kg

DRUGS (6)
  1. HUMIRA [Suspect]
     Indication: PSORIATIC ARTHROPATHY
     Route: 058
     Dates: start: 20090312
  2. LITHIUM CARBONATE [Concomitant]
     Indication: BIPOLAR DISORDER
     Route: 048
  3. BENICAR [Concomitant]
     Indication: HYPERTENSION
     Route: 048
  4. FERROUS SULFATE TAB [Concomitant]
     Indication: VITAMIN SUPPLEMENTATION
     Route: 048
  5. MULTI-VITAMIN [Concomitant]
     Indication: VITAMIN SUPPLEMENTATION
     Route: 048
  6. NAPROXEN [Concomitant]
     Indication: PAIN
     Route: 048

REACTIONS (4)
  - JOINT SWELLING [None]
  - LOCAL SWELLING [None]
  - OTITIS EXTERNA [None]
  - SKIN INFECTION [None]
